FAERS Safety Report 8764771 (Version 3)
Quarter: 2012Q4

REPORT INFORMATION
  Report Type: 
  Country: SE (occurrence: SE)
  Receive Date: 20120831
  Receipt Date: 20121108
  Transmission Date: 20130627
  Serious: Yes (Hospitalization, Other)
  Sender: FDA-Public Use
  Company Number: SE-ROCHE-1105631

PATIENT
  Age: 57 Year
  Sex: Female

DRUGS (9)
  1. ZELBORAF [Suspect]
     Indication: MALIGNANT MELANOMA
     Route: 048
     Dates: start: 20120504
  2. OMEPRAZOL [Concomitant]
     Route: 048
     Dates: start: 20111213
  3. LOCOBASE [Concomitant]
     Dosage: 200mg/g plus 45 mg/g
     Route: 065
     Dates: start: 20120420
  4. BETAPRED [Concomitant]
     Route: 048
     Dates: start: 20120217
  5. MORPHINE [Concomitant]
     Indication: PAIN
     Route: 048
     Dates: start: 20111213
  6. XANOR [Concomitant]
     Indication: ANXIETY
     Route: 048
     Dates: start: 20120822
  7. ATARAX [Concomitant]
     Indication: INSOMNIA
     Route: 048
     Dates: start: 20120320
  8. DOLCONTIN [Concomitant]
     Route: 048
     Dates: start: 20120727
  9. IMOVANE [Concomitant]
     Route: 065
     Dates: start: 20111213

REACTIONS (1)
  - Arthritis bacterial [Not Recovered/Not Resolved]
